FAERS Safety Report 6361887-9 (Version None)
Quarter: 2009Q3

REPORT INFORMATION
  Report Type: 
  Country: None (occurrence: None)
  Receive Date: 20090918
  Receipt Date: 20090908
  Transmission Date: 20100115
  Serious: Yes (Death)
  Sender: FDA-Public Use
  Company Number: NL-ROCHE-656207

PATIENT
  Sex: Female
  Weight: 52 kg

DRUGS (6)
  1. TAMIFLU [Suspect]
     Indication: INFLUENZA
     Route: 048
     Dates: start: 20090901
  2. PROPRANOLOL [Suspect]
     Indication: TREMOR
     Dosage: DRUG NAME REPORTED: PROPANOLOL HCL, FREQUENCY: QD
     Route: 048
     Dates: start: 20090831
  3. FENPROCOUMON [Concomitant]
     Dosage: DRUG NAME REPORTED: FENPROCOUMONE
     Route: 048
     Dates: start: 20050101
  4. BUDESONIDE [Concomitant]
     Dosage: FREQUENCY: BID
     Route: 055
     Dates: start: 20050101
  5. TAVEGYL [Concomitant]
     Route: 048
     Dates: start: 20070101
  6. ZOLPIDEM [Concomitant]
     Route: 048
     Dates: start: 20070101

REACTIONS (1)
  - DEATH [None]
